FAERS Safety Report 20430075 (Version 1)
Quarter: 2022Q1

REPORT INFORMATION
  Report Type: Spontaneous
  Country: US (occurrence: None)
  Receive Date: 20220204
  Receipt Date: 20220204
  Transmission Date: 20220424
  Serious: Yes (Disabling, Other)
  Sender: FDA-Public Use
  Company Number: 2022A048916

PATIENT
  Age: 57 Year
  Sex: Female
  Weight: 88.5 kg

DRUGS (5)
  1. SYMBICORT [Suspect]
     Active Substance: BUDESONIDE\FORMOTEROL FUMARATE DIHYDRATE
     Indication: Chronic obstructive pulmonary disease
     Dosage: 160/4.5 MCG 2 PUFFS TWICE DAILY
     Route: 055
  2. SYMBICORT [Suspect]
     Active Substance: BUDESONIDE\FORMOTEROL FUMARATE DIHYDRATE
     Indication: Emphysema
     Dosage: 160/4.5 MCG 2 PUFFS TWICE DAILY
     Route: 055
  3. DEVICE [Concomitant]
     Active Substance: DEVICE
  4. ALBUTEROL [Concomitant]
     Active Substance: ALBUTEROL
  5. INCRUSE INHALER [Concomitant]

REACTIONS (9)
  - Neck injury [Unknown]
  - Paralysis [Recovering/Resolving]
  - Memory impairment [Not Recovered/Not Resolved]
  - Intervertebral disc protrusion [Not Recovered/Not Resolved]
  - Face injury [Not Recovered/Not Resolved]
  - Spinal cord injury [Not Recovered/Not Resolved]
  - Wheezing [Recovering/Resolving]
  - Fall [Recovering/Resolving]
  - Product use issue [Not Recovered/Not Resolved]

NARRATIVE: CASE EVENT DATE: 20170101
